FAERS Safety Report 10169862 (Version 2)
Quarter: 2014Q3

REPORT INFORMATION
  Report Type: Report from Study
  Country: AR (occurrence: AR)
  Receive Date: 20140513
  Receipt Date: 20140718
  Transmission Date: 20150326
  Serious: Yes (Disabling, Other)
  Sender: FDA-Public Use
  Company Number: AR-ABBVIE-14P-007-1236656-00

PATIENT
  Age: 64 Year
  Sex: Male

DRUGS (2)
  1. DELTISONA B [Concomitant]
     Indication: RHEUMATOID ARTHRITIS
     Route: 048
     Dates: start: 201401
  2. HUMIRA [Suspect]
     Active Substance: ADALIMUMAB
     Indication: RHEUMATOID ARTHRITIS
     Route: 058
     Dates: start: 20130608, end: 201401

REACTIONS (7)
  - Cellulitis staphylococcal [Recovering/Resolving]
  - Platelet count decreased [Not Recovered/Not Resolved]
  - Oedema peripheral [Recovering/Resolving]
  - Pain [Recovered/Resolved]
  - Peripheral swelling [Recovering/Resolving]
  - Tendon disorder [Recovering/Resolving]
  - Prostate cancer [Recovering/Resolving]

NARRATIVE: CASE EVENT DATE: 201401
